FAERS Safety Report 9368070 (Version 1)
Quarter: 2013Q2

REPORT INFORMATION
  Report Type: Spontaneous
  Country: US (occurrence: US)
  Receive Date: 20130625
  Receipt Date: 20130625
  Transmission Date: 20140414
  Serious: Yes (Other)
  Sender: FDA-Public Use
  Company Number: US-ASTELLAS-2013US002668

PATIENT
  Sex: Female
  Weight: 51 kg

DRUGS (4)
  1. VESICARE [Suspect]
     Indication: CYSTITIS GLANDULARIS
     Dosage: 5 MG, UID/QD
     Route: 048
  2. VESICARE [Suspect]
     Indication: ATROPHIC VULVOVAGINITIS
     Dosage: 5 MG, UID/QD
     Route: 048
  3. VESICARE [Suspect]
     Indication: URGE INCONTINENCE
  4. VESICARE [Suspect]
     Indication: STRESS URINARY INCONTINENCE

REACTIONS (6)
  - Drug ineffective [Unknown]
  - Muscular weakness [Unknown]
  - Constipation [Unknown]
  - Urinary tract infection [Unknown]
  - Dry mouth [Unknown]
  - Off label use [Unknown]
